FAERS Safety Report 11075421 (Version 2)
Quarter: 2015Q2

REPORT INFORMATION
  Report Type: Spontaneous
  Country: US (occurrence: US)
  Receive Date: 20150429
  Receipt Date: 20150529
  Transmission Date: 20150821
  Serious: No
  Sender: FDA-Public Use
  Company Number: US-BIOGENIDEC-2015BI055891

PATIENT
  Age: 62 Year
  Sex: Female

DRUGS (18)
  1. VITAMIN B12 [Concomitant]
     Active Substance: CYANOCOBALAMIN
  2. LEXAPRO [Concomitant]
     Active Substance: ESCITALOPRAM OXALATE
  3. PROAIR HFA [Concomitant]
     Active Substance: ALBUTEROL SULFATE
  4. MAGNESIUM [Concomitant]
     Active Substance: MAGNESIUM
  5. KEPPRA [Concomitant]
     Active Substance: LEVETIRACETAM
  6. GABAPENTIN. [Concomitant]
     Active Substance: GABAPENTIN
  7. TECFIDERA [Suspect]
     Active Substance: DIMETHYL FUMARATE
     Indication: MULTIPLE SCLEROSIS
     Route: 048
     Dates: start: 20150130
  8. CARVEDILOL. [Concomitant]
     Active Substance: CARVEDILOL
  9. AMITRIPTYLINE HCI [Concomitant]
  10. COREG [Concomitant]
     Active Substance: CARVEDILOL
  11. QVAR [Concomitant]
     Active Substance: BECLOMETHASONE DIPROPIONATE
  12. CALTRATE 600 D [Concomitant]
  13. TECFIDERA [Suspect]
     Active Substance: DIMETHYL FUMARATE
     Indication: MULTIPLE SCLEROSIS
     Dates: start: 20140109, end: 20150414
  14. VITAMIN D [Concomitant]
     Active Substance: CHOLECALCIFEROL
  15. XOPENEX [Concomitant]
     Active Substance: LEVALBUTEROL HYDROCHLORIDE
  16. MONTELUKAST SODIUM. [Concomitant]
     Active Substance: MONTELUKAST SODIUM
  17. COPAXONE CARES FDP [Concomitant]
  18. ADDERRALL [Concomitant]

REACTIONS (2)
  - Lymphopenia [Not Recovered/Not Resolved]
  - Sensory disturbance [Not Recovered/Not Resolved]

NARRATIVE: CASE EVENT DATE: 201502
